FAERS Safety Report 26103322 (Version 1)
Quarter: 2025Q4

REPORT INFORMATION
  Report Type: Spontaneous
  Country: US (occurrence: US)
  Receive Date: 20251129
  Receipt Date: 20251129
  Transmission Date: 20260117
  Serious: No
  Sender: IBSA INSTITUT BIOCHIMIQUE
  Company Number: US-IBSA PHARMA INC.-2025IBS000470

PATIENT

DRUGS (4)
  1. TIROSINT [Suspect]
     Active Substance: LEVOTHYROXINE SODIUM
     Indication: Product used for unknown indication
     Dosage: 100 MICROGRAM, QD
     Dates: start: 20250724, end: 20250727
  2. TIROSINT [Suspect]
     Active Substance: LEVOTHYROXINE SODIUM
     Dosage: 25 MICROGRAM, QD
     Dates: start: 20250724, end: 20250727
  3. TIROSINT [Suspect]
     Active Substance: LEVOTHYROXINE SODIUM
     Dosage: 25 MICROGRAM, QD
     Dates: start: 20250724, end: 20250726
  4. TIROSINT [Suspect]
     Active Substance: LEVOTHYROXINE SODIUM
     Dosage: 150 MICROGRAM, QD
     Dates: end: 2025

REACTIONS (5)
  - Headache [Recovered/Resolved]
  - Hyperhidrosis [Recovered/Resolved]
  - Palpitations [Recovered/Resolved]
  - Blood pressure increased [Recovered/Resolved]
  - Heart rate increased [Recovered/Resolved]

NARRATIVE: CASE EVENT DATE: 20250725
